FAERS Safety Report 8476372-8 (Version None)
Quarter: 2012Q2

REPORT INFORMATION
  Report Type: 
  Country: None (occurrence: None)
  Receive Date: 20120628
  Receipt Date: 20120619
  Transmission Date: 20120825
  Serious: Yes (Other)
  Sender: FDA-Public Use
  Company Number: CA-JNJFOC-20120610608

PATIENT
  Sex: Female
  Weight: 62.4 kg

DRUGS (9)
  1. REMICADE [Suspect]
     Indication: RHEUMATOID ARTHRITIS
     Route: 042
  2. DIDROCAL [Concomitant]
     Route: 065
  3. ARAVA [Concomitant]
     Route: 065
  4. OXYCET [Concomitant]
     Route: 065
  5. MULTIVITE [Concomitant]
     Route: 065
  6. LEVOTHYROXINE SODIUM [Concomitant]
     Route: 065
  7. ASPIRIN [Concomitant]
     Route: 065
  8. CALCIUM [Concomitant]
     Route: 065
  9. OMEGA 3-6-9 [Concomitant]
     Route: 065

REACTIONS (1)
  - EXPOSURE TO COMMUNICABLE DISEASE [None]
